FAERS Safety Report 5587427-X (Version None)
Quarter: 2007Q4

REPORT INFORMATION
  Report Type: 
  Country: None (occurrence: None)
  Receive Date: 20071207
  Receipt Date: 20070219
  Transmission Date: 20080405
  Serious: Yes (Other)
  Sender: FDA-Public Use
  Company Number: 2004080043

PATIENT
  Sex: Male

DRUGS (7)
  1. VIAGRA [Suspect]
     Dosage: (50 MG)
     Dates: start: 20030701
  2. NIFEDICAL (NIFEDIPINE) [Suspect]
     Dates: start: 20060101
  3. DOXAZOSIN MESYLATE [Concomitant]
  4. POTASSIUM (POTASSIUM) [Concomitant]
  5. ENALAPRIL MALEATE [Concomitant]
  6. HYDROCHLOROTHIAZIDE [Concomitant]
  7. CRESTOR [Concomitant]

REACTIONS (5)
  - CYANOPSIA [None]
  - DRUG INEFFECTIVE [None]
  - DRUG INTERACTION [None]
  - MYOCARDIAL INFARCTION [None]
  - THERAPEUTIC RESPONSE DELAYED [None]
